FAERS Safety Report 15130914 (Version 1)
Quarter: 2018Q3

REPORT INFORMATION
  Report Type: Spontaneous
  Country: US (occurrence: US)
  Receive Date: 20180711
  Receipt Date: 20180711
  Transmission Date: 20181010
  Serious: No
  Sender: FDA-Public Use
  Company Number: US-ACTELION-A-NJ2018-175159

PATIENT
  Age: 59 Year
  Sex: Female

DRUGS (8)
  1. IPRATROPIUM [Concomitant]
     Active Substance: IPRATROPIUM
  2. OPSUMIT [Suspect]
     Active Substance: MACITENTAN
     Indication: PULMONARY ARTERIAL HYPERTENSION
     Dosage: 10 MG, QD
     Route: 048
     Dates: start: 20171128
  3. ALBUTEROL. [Concomitant]
     Active Substance: ALBUTEROL
  4. COMBIVENT [Concomitant]
     Active Substance: ALBUTEROL SULFATE\IPRATROPIUM BROMIDE
  5. IBUPROFEN. [Concomitant]
     Active Substance: IBUPROFEN
  6. CLARITIN [Concomitant]
     Active Substance: LORATADINE
  7. SYMBICORT [Concomitant]
     Active Substance: BUDESONIDE\FORMOTEROL FUMARATE DIHYDRATE
  8. TRIAMTERENE. [Concomitant]
     Active Substance: TRIAMTERENE

REACTIONS (2)
  - Memory impairment [Unknown]
  - Drug dose omission [Unknown]
